FAERS Safety Report 8581617 (Version 2)
Quarter: 2012Q4

REPORT INFORMATION
  Report Type: 
  Country: US (occurrence: US)
  Receive Date: 20120525
  Receipt Date: 20120921
  Transmission Date: 20130627
  Serious: Yes (Congenital Anomaly, Other)
  Sender: FDA-Public Use
  Company Number: US-FRI-1000025151

PATIENT
  Age: 0 Year
  Sex: Male
  Weight: 3 kg

DRUGS (1)
  1. CELEXA [Suspect]
     Indication: DEPRESSION
     Dosage: 60 mg
     Route: 064
     Dates: end: 20010920

REACTIONS (3)
  - Developmental delay [Not Recovered/Not Resolved]
  - Autism [Not Recovered/Not Resolved]
  - Asthma [Not Recovered/Not Resolved]
